FAERS Safety Report 7283521-6 (Version None)
Quarter: 2011Q1

REPORT INFORMATION
  Report Type: 
  Country: None (occurrence: None)
  Receive Date: 20110209
  Receipt Date: 20110131
  Transmission Date: 20110831
  Serious: Yes (Life-Threatening)
  Sender: FDA-Public Use
  Company Number: ES-TEVA-265903ISR

PATIENT
  Sex: Female
  Weight: 70.3 kg

DRUGS (8)
  1. FENTANYL [Concomitant]
     Indication: ANALGESIC THERAPY
     Route: 061
     Dates: start: 20101029
  2. DEXAMETHASONE [Suspect]
     Dates: start: 20100120, end: 20101215
  3. LENALIDOMIDE [Suspect]
     Route: 048
     Dates: start: 20101201, end: 20101217
  4. FUROSEMIDE [Concomitant]
     Indication: OEDEMA
     Route: 048
     Dates: start: 20101217
  5. PREGABALIN [Concomitant]
     Indication: ANALGESIC THERAPY
     Route: 048
     Dates: start: 20101029
  6. FUROSEMIDE [Concomitant]
     Indication: CARDIAC FAILURE CONGESTIVE
     Route: 048
     Dates: start: 20101029
  7. HEPARIN SODIUM [Concomitant]
     Indication: THROMBOSIS PROPHYLAXIS
     Route: 058
     Dates: start: 20100120
  8. TRAMADOL HCL [Concomitant]
     Indication: ANALGESIC THERAPY
     Route: 048
     Dates: start: 20101029

REACTIONS (2)
  - CARDIAC FAILURE CONGESTIVE [None]
  - UPPER RESPIRATORY TRACT INFECTION [None]
